FAERS Safety Report 4587296-0 (Version None)
Quarter: 2005Q1

REPORT INFORMATION
  Report Type: 
  Country: None (occurrence: None)
  Receive Date: 20050218
  Receipt Date: 20040901
  Transmission Date: 20050727
  Serious: Yes (Hospitalization)
  Sender: FDA-Public Use
  Company Number: FR-BRISTOL-MYERS SQUIBB COMPANY-12692364

PATIENT
  Age: 38 Year
  Sex: Male
  Weight: 48 kg

DRUGS (6)
  1. REYATAZ [Suspect]
     Indication: HIV INFECTION
     Route: 048
     Dates: start: 20040708
  2. NORVIR [Suspect]
     Indication: HIV INFECTION
     Route: 048
     Dates: start: 20040708
  3. EPIVIR [Suspect]
     Indication: HIV INFECTION
     Route: 048
     Dates: start: 20040708
  4. ZIAGEN [Suspect]
     Indication: HIV INFECTION
     Route: 048
     Dates: start: 20040708
  5. FUZEON [Suspect]
     Indication: HIV INFECTION
     Route: 048
     Dates: start: 20040708
  6. STILNOX [Suspect]
     Indication: SLEEP DISORDER
     Dosage: DOSAGE FORM: TABLET
     Route: 048
     Dates: start: 20040101, end: 20040831

REACTIONS (6)
  - AGGRESSION [None]
  - ANXIETY [None]
  - DISORIENTATION [None]
  - MEMORY IMPAIRMENT [None]
  - NERVOUSNESS [None]
  - SLEEP DISORDER [None]
